FAERS Safety Report 21438210 (Version 1)
Quarter: 2022Q4

REPORT INFORMATION
  Report Type: Spontaneous
  Country: CN (occurrence: CN)
  Receive Date: 20221011
  Receipt Date: 20221011
  Transmission Date: 20230113
  Serious: Yes (Hospitalization)
  Sender: FDA-Public Use
  Company Number: CN-SPECGX-T202202141

PATIENT
  Age: 45 Year
  Sex: Male
  Weight: 81 kg

DRUGS (10)
  1. ACETAMINOPHEN\OXYCODONE HYDROCHLORIDE [Suspect]
     Active Substance: ACETAMINOPHEN\OXYCODONE HYDROCHLORIDE
     Indication: Pain
     Dosage: 1 DOSAGE FORM, BID
     Route: 048
     Dates: start: 20220701, end: 20220708
  2. ORYCTOLAGUS CUNICULUS SKIN [Suspect]
     Active Substance: ORYCTOLAGUS CUNICULUS SKIN
     Indication: Back pain
     Dosage: 3 MILLILITER, QD
     Route: 042
     Dates: start: 20220701, end: 20220708
  3. METHYLCOBALAMIN [Concomitant]
     Active Substance: METHYLCOBALAMIN
     Indication: Spinal cord injury cauda equina
     Dosage: 1 MILLIGRAM, QD
     Route: 042
     Dates: start: 20220701, end: 20220820
  4. DYNASTAT [Concomitant]
     Active Substance: PARECOXIB SODIUM
     Indication: Procedural pain
     Dosage: 40 MILLIGRAM, BID
     Route: 042
     Dates: start: 20220701, end: 20220708
  5. ZINACEF [Concomitant]
     Active Substance: CEFUROXIME SODIUM
     Indication: Infection prophylaxis
     Dosage: 2 DOSAGE FORM, BID
     Route: 042
     Dates: start: 20220701, end: 20220708
  6. IRON SUCROSE [Concomitant]
     Active Substance: IRON SUCROSE
     Indication: Iron deficiency anaemia
     Dosage: 5 MILLILITER, QD
     Route: 042
     Dates: start: 20220701, end: 20220708
  7. OMEPRAZOLE SODIUM [Concomitant]
     Active Substance: OMEPRAZOLE SODIUM
     Indication: Prophylaxis
     Dosage: 40 MILLIGRAM, BID
     Route: 042
     Dates: start: 20220701, end: 20220708
  8. DEXAMETHASONE SODIUM PHOSPHATE [Concomitant]
     Active Substance: DEXAMETHASONE SODIUM PHOSPHATE
     Indication: Antiinflammatory therapy
     Dosage: 2 MILLILITER, QD
     Route: 042
     Dates: start: 20220701, end: 20220708
  9. ENOXAPARIN SODIUM [Concomitant]
     Active Substance: ENOXAPARIN SODIUM
     Indication: Anticoagulant therapy
     Dosage: 6000 U, ONCE DAILY
     Route: 058
     Dates: start: 20220706, end: 20220715
  10. ENOXAPARIN SODIUM [Concomitant]
     Active Substance: ENOXAPARIN SODIUM
     Indication: Deep vein thrombosis

REACTIONS (2)
  - Deep vein thrombosis postoperative [Recovered/Resolved]
  - Liver injury [Recovered/Resolved]

NARRATIVE: CASE EVENT DATE: 20220704
